FAERS Safety Report 9856530 (Version 1)
Quarter: 2014Q1

REPORT INFORMATION
  Report Type: Spontaneous
  Country: US (occurrence: None)
  Receive Date: 20140128
  Receipt Date: 20140128
  Transmission Date: 20141002
  Serious: Yes (Death)
  Sender: FDA-Public Use
  Company Number: FK201400211

PATIENT
  Age: 36 Year
  Sex: Female

DRUGS (5)
  1. MIDAZOLAM [Suspect]
     Indication: PRODUCT USED FOR UNKNOWN INDICATION
  2. PHENYTOIN [Suspect]
     Indication: PRODUCT USED FOR UNKNOWN INDICATION
  3. CARBAMAZEPINE [Suspect]
     Indication: PRODUCT USED FOR UNKNOWN INDICATION
  4. LORAZEPAM (LORAZEPAM) (LORAZEPAM) [Suspect]
     Indication: PRODUCT USED FOR UNKNOWN INDICATION
  5. ACRIDINE DERIVATIVES [Suspect]
     Indication: PRODUCT USED FOR UNKNOWN INDICATION

REACTIONS (2)
  - Overdose [None]
  - Toxicity to various agents [None]
